FAERS Safety Report 6963146-X (Version None)
Quarter: 2010Q3

REPORT INFORMATION
  Report Type: 
  Country: None (occurrence: None)
  Receive Date: 20100902
  Receipt Date: 20100824
  Transmission Date: 20110219
  Serious: Yes (Hospitalization)
  Sender: FDA-Public Use
  Company Number: GXKR2010GB09583

PATIENT
  Sex: Male

DRUGS (6)
  1. CARBOPLATIN [Suspect]
     Dosage: 480 MG, UNK
     Route: 042
     Dates: start: 20100713, end: 20100713
  2. VINORELBINE TARTRATE [Suspect]
     Indication: LUNG NEOPLASM MALIGNANT
     Dosage: 120 MG, UNK
     Route: 048
     Dates: start: 20100713, end: 20100713
  3. BENDROFLUMETHIAZIDE [Concomitant]
     Dosage: 2.5 MG, UNK
     Route: 048
     Dates: start: 20030101
  4. CANDESARTAN CILEXETIL [Concomitant]
     Dosage: 4 MG, UNK
     Route: 048
     Dates: start: 20030101
  5. DALTEPARIN SODIUM [Concomitant]
     Dosage: UNK
     Dates: start: 20100615
  6. FOLIC ACID [Concomitant]
     Dosage: 400 MG, UNK
     Route: 048
     Dates: start: 20100604

REACTIONS (1)
  - PERIPHERAL ISCHAEMIA [None]
